FAERS Safety Report 17493018 (Version 2)
Quarter: 2020Q1

REPORT INFORMATION
  Report Type: Spontaneous
  Country: IT (occurrence: IT)
  Receive Date: 20200304
  Receipt Date: 20200327
  Transmission Date: 20200409
  Serious: Yes (Other)
  Sender: FDA-Public Use
  Company Number: IT-TEVA-2020-IT-1193975

PATIENT
  Age: 70 Year
  Sex: Female

DRUGS (9)
  1. ALENDRONATE SODIUM. [Suspect]
     Active Substance: ALENDRONATE SODIUM
     Indication: OSTEOPOROSIS POSTMENOPAUSAL
     Dosage: 70 MG 1 WEEKS
     Route: 048
  2. ATORVASTATIN [Concomitant]
     Active Substance: ATORVASTATIN
  3. ARTROTEC 50 MG + 200 MCG COMPRESSE [Concomitant]
  4. PANTOPRAZOLO HEXAL AG [Suspect]
     Active Substance: PANTOPRAZOLE SODIUM
  5. EUTIROX 75 MICROGRAMMI COMPRESSE [Concomitant]
     Active Substance: LEVOTHYROXINE SODIUM
  6. TRIATEC [Concomitant]
  7. DIBASE 100.000 U.I./ML SOLUZIONE INIETTABILE [Concomitant]
  8. EXEMESTANE. [Concomitant]
     Active Substance: EXEMESTANE
  9. HALCION [Concomitant]
     Active Substance: TRIAZOLAM

REACTIONS (1)
  - Osteonecrosis [Recovered/Resolved with Sequelae]
